FAERS Safety Report 24364840 (Version 1)
Quarter: 2024Q3

REPORT INFORMATION
  Report Type: Spontaneous
  Country: TR (occurrence: TR)
  Receive Date: 20240926
  Receipt Date: 20240926
  Transmission Date: 20241017
  Serious: Yes (Other)
  Sender: NOVO NORDISK
  Company Number: TR-NOVOPROD-1166519

PATIENT
  Age: 815 Month
  Sex: Male
  Weight: 60 kg

DRUGS (3)
  1. NOVORAPID [Suspect]
     Active Substance: INSULIN ASPART
     Indication: Diabetes mellitus
     Dosage: 4 IU, BID( (IN THE MORNING AND IN THE EVENING)
     Route: 058
     Dates: start: 20231215, end: 20240115
  2. INSULIN ASPART\INSULIN DEGLUDEC [Suspect]
     Active Substance: INSULIN ASPART\INSULIN DEGLUDEC
     Dosage: 12 IU, BID
     Route: 058
     Dates: start: 20231215
  3. INSULIN ASPART\INSULIN DEGLUDEC [Suspect]
     Active Substance: INSULIN ASPART\INSULIN DEGLUDEC
     Indication: Diabetes mellitus
     Dosage: 20 IU, QD (IN THE EVENING)
     Route: 058
     Dates: start: 20231215

REACTIONS (4)
  - Myocardial infarction [Recovered/Resolved]
  - Weight decreased [Recovered/Resolved]
  - Blood glucose increased [Unknown]
  - Incorrect dose administered [Recovered/Resolved]

NARRATIVE: CASE EVENT DATE: 20231215
